FAERS Safety Report 9769086 (Version 3)
Quarter: 2013Q4

REPORT INFORMATION
  Report Type: Spontaneous
  Country: BE (occurrence: BE)
  Receive Date: 20131218
  Receipt Date: 20131227
  Transmission Date: 20140711
  Serious: Yes (Other)
  Sender: FDA-Public Use
  Company Number: BE-JNJFOC-20131102478

PATIENT
  Age: 18 Year
  Sex: Female
  Weight: 65 kg

DRUGS (3)
  1. SIMPONI [Suspect]
     Indication: ANKYLOSING SPONDYLITIS
     Route: 058
     Dates: start: 20130911, end: 20131009
  2. CELEBREX [Concomitant]
     Indication: ANKYLOSING SPONDYLITIS
     Route: 048
     Dates: start: 201306
  3. DAFALGAN [Concomitant]
     Route: 065

REACTIONS (2)
  - Hypersensitivity [Recovered/Resolved]
  - Muscle spasms [Unknown]
